FAERS Safety Report 9637885 (Version 4)
Quarter: 2013Q4

REPORT INFORMATION
  Report Type: Report from Study
  Country: FR (occurrence: CZ)
  Receive Date: 20131022
  Receipt Date: 20131231
  Transmission Date: 20140711
  Serious: Yes (Death, Hospitalization)
  Sender: FDA-Public Use
  Company Number: CZ-FRI-1000050000

PATIENT
  Age: 76 Year
  Sex: Male
  Weight: 103 kg

DRUGS (10)
  1. CLOPIDOGREL [Suspect]
     Indication: PROPHYLAXIS
     Dosage: 75 MG
     Route: 048
     Dates: start: 20130806
  2. FRAXIPARIN [Suspect]
     Indication: THROMBOSIS PROPHYLAXIS
     Dosage: 0.3 ML
     Route: 023
     Dates: start: 20130805
  3. PIRAMIL [Concomitant]
     Indication: HYPERTENSION
     Dosage: 10 MG
     Route: 048
  4. INDAPAMIDE [Concomitant]
     Indication: HYPERTENSION
     Dosage: 2.5 MG
     Route: 048
  5. AMLODIPINE [Concomitant]
     Indication: HYPERTENSION
     Dosage: 5 MG
     Route: 048
  6. ATORVASTATIN [Concomitant]
     Indication: HYPERLIPIDAEMIA
     Dosage: 20 MG
     Route: 048
     Dates: start: 20130806
  7. ANOPYRIN [Concomitant]
     Dosage: 100
  8. LACTULOSE [Concomitant]
  9. KCL [Concomitant]
  10. LEVOMILNACIPRAN EXTENDED-RELEASE CAP [Suspect]
     Indication: CEREBROVASCULAR ACCIDENT
     Dosage: 150 MG
     Dates: start: 20130806, end: 20131005

REACTIONS (2)
  - Sudden death [Fatal]
  - Cardiac arrest [None]
